FAERS Safety Report 8791423 (Version 1)
Quarter: 2012Q4

REPORT INFORMATION
  Report Type: Spontaneous
  Country: CH (occurrence: None)
  Receive Date: 20120912
  Receipt Date: 20120912
  Transmission Date: 20130627
  Serious: No
  Sender: FDA-Public Use
  Company Number: 2012MA010710

PATIENT
  Age: 64 Year
  Sex: Female

DRUGS (2)
  1. PACLITAXEL [Suspect]
     Indication: METASTASIS
     Dates: start: 20100330
  2. BEVACIZUMAB [Suspect]
     Dates: start: 20100330

REACTIONS (4)
  - Macular oedema [None]
  - Vision blurred [None]
  - Visual acuity reduced [None]
  - Cataract [None]
